FAERS Safety Report 5130221-4 (Version None)
Quarter: 2006Q4

REPORT INFORMATION
  Report Type: 
  Country: None (occurrence: None)
  Receive Date: 20061019
  Receipt Date: 20061004
  Transmission Date: 20070319
  Serious: Yes (Other)
  Sender: FDA-Public Use
  Company Number: US-JNJFOC-20060505801

PATIENT
  Age: 81 Year
  Sex: Male

DRUGS (3)
  1. REMICADE [Suspect]
     Route: 042
  2. REMICADE [Suspect]
     Indication: RHEUMATOID ARTHRITIS
     Dosage: 7 DOSES
     Route: 042
  3. METHOTREXATE [Concomitant]

REACTIONS (1)
  - LYMPHOMA [None]
